FAERS Safety Report 8016030-7 (Version None)
Quarter: 2011Q4

REPORT INFORMATION
  Report Type: 
  Country: None (occurrence: None)
  Receive Date: 20111230
  Receipt Date: 20111228
  Transmission Date: 20120403
  Serious: Yes (Other)
  Sender: FDA-Public Use
  Company Number: US-PFIZER INC-2011314908

PATIENT
  Sex: Male

DRUGS (2)
  1. PREPARATION H HEMORRHOIDAL SUPPOSITORIES [Suspect]
     Dosage: UNK
     Dates: start: 20111228
  2. DULCOLAX [Suspect]
     Dosage: UNK

REACTIONS (3)
  - APPLICATION SITE IRRITATION [None]
  - APPLICATION SITE REACTION [None]
  - HAEMORRHOIDAL HAEMORRHAGE [None]
